FAERS Safety Report 8204578-1 (Version None)
Quarter: 2012Q1

REPORT INFORMATION
  Report Type: 
  Country: None (occurrence: None)
  Receive Date: 20120313
  Receipt Date: 20120306
  Transmission Date: 20120608
  Serious: Yes (Other)
  Sender: FDA-Public Use
  Company Number: US-PFIZER INC-2012032910

PATIENT
  Sex: Female
  Weight: 70.748 kg

DRUGS (11)
  1. ACETYLSALICYLIC ACID SRT [Suspect]
     Dosage: 81 MG, DAILY
  2. NAPROXEN (ALEVE) [Concomitant]
     Dosage: UNK
  3. LYRICA [Suspect]
     Indication: NEUROPATHY PERIPHERAL
     Dosage: 25 MG, 2X/DAY
  4. LYRICA [Suspect]
     Dosage: 50MG, UNK
  5. NEXIUM [Suspect]
     Indication: GASTROOESOPHAGEAL REFLUX DISEASE
     Dosage: UNK, DAILY
  6. IBUPROFEN (ADVIL) [Concomitant]
     Dosage: UNK
  7. LYRICA [Suspect]
     Dosage: 75 MG, 2 IN THE MORNING, 1 AT NOON, 2 AT BEDTIME
  8. PAMELOR [Suspect]
     Dosage: UNK
  9. LYRICA [Suspect]
     Dosage: 25 MG, 3X/DAY
  10. ACETYLSALICYLIC ACID SRT [Suspect]
     Indication: CARDIAC DISORDER
     Dosage: UNK, DAILY
  11. IBUPROFEN [Concomitant]
     Dosage: UNK

REACTIONS (18)
  - DYSPHAGIA [None]
  - FALL [None]
  - DIZZINESS [None]
  - CONSTIPATION [None]
  - VOMITING [None]
  - DIPLOPIA [None]
  - HALLUCINATION [None]
  - URINARY INCONTINENCE [None]
  - SOMNOLENCE [None]
  - INSOMNIA [None]
  - GASTROOESOPHAGEAL REFLUX DISEASE [None]
  - DYSARTHRIA [None]
  - PARAESTHESIA [None]
  - NAUSEA [None]
  - DRUG INEFFECTIVE [None]
  - ABDOMINAL DISCOMFORT [None]
  - DISORIENTATION [None]
  - PAIN [None]
